FAERS Safety Report 9596058 (Version 1)
Quarter: 2013Q4

REPORT INFORMATION
  Report Type: Spontaneous
  Country: US (occurrence: US)
  Receive Date: 20131004
  Receipt Date: 20131004
  Transmission Date: 20140711
  Serious: No
  Sender: FDA-Public Use
  Company Number: US-009507513-1309USA010130

PATIENT
  Age: 69 Year
  Sex: Male

DRUGS (2)
  1. PROSCAR [Suspect]
     Indication: BENIGN PROSTATIC HYPERPLASIA
     Dosage: 5 MG, EVERY OTHER DAY
     Route: 048
     Dates: start: 20130801, end: 20130917
  2. FLOMAX (MORNIFLUMATE) [Concomitant]
     Dosage: UNK
     Dates: end: 20130917

REACTIONS (4)
  - Hypotension [Recovering/Resolving]
  - Extrasystoles [Not Recovered/Not Resolved]
  - Dizziness [Unknown]
  - Inappropriate schedule of drug administration [Unknown]
